FAERS Safety Report 20164998 (Version 1)
Quarter: 2021Q4

REPORT INFORMATION
  Report Type: Spontaneous
  Country: US (occurrence: US)
  Receive Date: 20211209
  Receipt Date: 20211209
  Transmission Date: 20220303
  Serious: No
  Sender: FDA-Public Use
  Company Number: US-PFIZER INC-202101266172

PATIENT
  Sex: Female

DRUGS (1)
  1. TPN ELECTROLYTES [Suspect]
     Active Substance: CALCIUM CHLORIDE\MAGNESIUM CHLORIDE\POTASSIUM CHLORIDE\SODIUM ACETATE ANHYDROUS\SODIUM CHLORIDE
     Dosage: UNK

REACTIONS (4)
  - Heart rate increased [Unknown]
  - Dyspnoea [Unknown]
  - Headache [Unknown]
  - Urticaria [Unknown]

NARRATIVE: CASE EVENT DATE: 20150201
